FAERS Safety Report 13607356 (Version 1)
Quarter: 2017Q2

REPORT INFORMATION
  Report Type: Spontaneous
  Country: US (occurrence: US)
  Receive Date: 20170602
  Receipt Date: 20170602
  Transmission Date: 20170830
  Serious: No
  Sender: FDA-Public Use
  Company Number: US-ARBOR PHARMACEUTICALS, LLC-US-2016ARB002202

PATIENT

DRUGS (2)
  1. HORIZANT [Suspect]
     Active Substance: GABAPENTIN ENACARBIL
     Dosage: TOTAL DAILY DOSE OF 3000 MG
     Route: 048
  2. HORIZANT [Suspect]
     Active Substance: GABAPENTIN ENACARBIL
     Indication: PRODUCT USED FOR UNKNOWN INDICATION
     Dosage: 600 MG, QD, TOTAL DAILY DOSE OF 600MG
     Route: 048

REACTIONS (3)
  - Dysarthria [Not Recovered/Not Resolved]
  - Gait disturbance [Not Recovered/Not Resolved]
  - Disturbance in attention [Not Recovered/Not Resolved]
